FAERS Safety Report 8449083-2 (Version None)
Quarter: 2012Q2

REPORT INFORMATION
  Report Type: 
  Country: None (occurrence: None)
  Receive Date: 20120612
  Receipt Date: 20120529
  Transmission Date: 20120825
  Serious: Yes (Hospitalization)
  Sender: FDA-Public Use
  Company Number: 2012-002043

PATIENT
  Age: 79 Year
  Sex: Female

DRUGS (1)
  1. ACTONEL [Suspect]
     Dosage: ORAL
     Route: 048

REACTIONS (12)
  - GASTROINTESTINAL DISORDER [None]
  - BONE DISORDER [None]
  - ACTIVITIES OF DAILY LIVING IMPAIRED [None]
  - BODY HEIGHT DECREASED [None]
  - INTESTINAL OBSTRUCTION [None]
  - BONE PAIN [None]
  - GASTRIC DILATATION [None]
  - BONE LOSS [None]
  - WEIGHT DECREASED [None]
  - KYPHOSIS [None]
  - BACK PAIN [None]
  - PAIN [None]
